FAERS Safety Report 8556704-2 (Version None)
Quarter: 2012Q3

REPORT INFORMATION
  Report Type: 
  Country: None (occurrence: None)
  Receive Date: 20120801
  Receipt Date: 20120723
  Transmission Date: 20120928
  Serious: Yes (Other)
  Sender: FDA-Public Use
  Company Number: JP-ASTELLAS-2012JP003290

PATIENT
  Sex: Female
  Weight: 56.4 kg

DRUGS (9)
  1. METHOTREXATE [Concomitant]
     Indication: PROPHYLAXIS AGAINST GRAFT VERSUS HOST DISEASE
     Dosage: UNK
     Route: 042
     Dates: start: 20110902, end: 20110912
  2. URSO                               /00465701/ [Concomitant]
     Indication: HEPATITIS C
     Dosage: 300 MG, TID
     Route: 048
  3. PROGRAF [Suspect]
     Indication: PROPHYLAXIS AGAINST GRAFT VERSUS HOST DISEASE
     Dosage: UNK
     Route: 041
     Dates: start: 20110801, end: 20111004
  4. PROGRAF [Suspect]
     Dosage: UNK
     Route: 048
     Dates: start: 20111005, end: 20111119
  5. THYMOGLOBULIN [Suspect]
     Indication: PREMEDICATION
     Dosage: 70 MG, UID/QD
     Route: 041
     Dates: start: 20110828, end: 20110829
  6. ITRACONAZOLE [Concomitant]
     Indication: INFECTION PROPHYLAXIS
     Dosage: 200 MG, UID/QD
     Route: 048
     Dates: start: 20111022
  7. DENOSINE                           /00784201/ [Suspect]
     Indication: CYTOMEGALOVIRUS INFECTION
     Dosage: 260 MG, UID/QD
     Route: 041
     Dates: start: 20111015, end: 20111026
  8. FLUDARA [Concomitant]
     Indication: PREMEDICATION
     Dosage: 45 MG, UID/QD
     Route: 041
     Dates: start: 20110826, end: 20110829
  9. CYCLOPHOSPHAMIDE [Concomitant]
     Indication: PREMEDICATION
     Dosage: 1290 MG, UID/QD
     Route: 041
     Dates: start: 20110826, end: 20110829

REACTIONS (2)
  - CYTOMEGALOVIRUS INFECTION [None]
  - BONE MARROW FAILURE [None]
